FAERS Safety Report 6096234-3 (Version None)
Quarter: 2009Q1

REPORT INFORMATION
  Report Type: 
  Country: None (occurrence: None)
  Receive Date: 20090227
  Receipt Date: 20081024
  Transmission Date: 20090719
  Serious: Yes (Other)
  Sender: FDA-Public Use
  Company Number: A0751586A

PATIENT
  Age: 30 Year
  Sex: Female

DRUGS (5)
  1. LAMICTAL [Suspect]
     Indication: BIPOLAR DISORDER
     Dosage: 25MG PER DAY
     Route: 048
     Dates: start: 20080923
  2. DEPAKOTE ER [Suspect]
     Indication: BIPOLAR DISORDER
     Dosage: 250MG AT NIGHT
     Route: 048
     Dates: start: 20080909, end: 20080929
  3. AMBIEN [Concomitant]
     Indication: INSOMNIA
     Dosage: 10MG AT NIGHT
     Route: 048
     Dates: start: 20080808
  4. TRAZODONE HCL [Concomitant]
     Indication: INSOMNIA
     Dosage: 50MG AT NIGHT
     Route: 048
  5. RISPERDAL [Concomitant]
     Route: 048

REACTIONS (2)
  - ERYTHEMA [None]
  - RASH [None]
